FAERS Safety Report 5201904-2 (Version None)
Quarter: 2006Q4

REPORT INFORMATION
  Report Type: 
  Country: None (occurrence: None)
  Receive Date: 20061010
  Receipt Date: 20060209
  Transmission Date: 20070319
  Serious: Yes (Other)
  Sender: FDA-Public Use
  Company Number: 2006-02-0375

PATIENT

DRUGS (3)
  1. TEMODAR [Suspect]
     Dosage: ORAL
     Route: 048
  2. RADIATION THERAPY NO DOSE FORM [Suspect]
     Dosage: X-RAY THERAPY
  3. DILANTIN [Suspect]

REACTIONS (1)
  - PLATELET COUNT DECREASED [None]
